FAERS Safety Report 6468528-0 (Version None)
Quarter: 2009Q4

REPORT INFORMATION
  Report Type: 
  Country: None (occurrence: None)
  Receive Date: 20091203
  Receipt Date: 20091124
  Transmission Date: 20100525
  Serious: Yes (Hospitalization)
  Sender: FDA-Public Use
  Company Number: FR-JNJFOC-20091107052

PATIENT
  Age: 82 Year
  Sex: Male

DRUGS (8)
  1. TAVANIC [Suspect]
     Indication: PNEUMONIA ASPIRATION
     Route: 065
     Dates: start: 20090706, end: 20090708
  2. EBIXA [Interacting]
     Indication: DRUG USE FOR UNKNOWN INDICATION
     Route: 048
  3. ROCEPHIN [Concomitant]
     Route: 065
     Dates: start: 20090703, end: 20090717
  4. RISPERDAL [Concomitant]
     Route: 065
  5. SERESTA [Concomitant]
     Route: 065
  6. EFFEXOR [Concomitant]
     Route: 065
  7. FORLAX [Concomitant]
     Route: 065
  8. DOLIPRANE [Concomitant]
     Route: 065

REACTIONS (3)
  - CONTRAINDICATION TO MEDICAL TREATMENT [None]
  - DRUG INTERACTION [None]
  - PETIT MAL EPILEPSY [None]
